FAERS Safety Report 25016627 (Version 2)
Quarter: 2025Q1

REPORT INFORMATION
  Report Type: Spontaneous
  Country: CA (occurrence: CA)
  Receive Date: 20250227
  Receipt Date: 20250228
  Transmission Date: 20250408
  Serious: Yes (Other)
  Sender: TEVA
  Company Number: CA-TEVA-VS-3303871

PATIENT
  Age: 3 Year
  Sex: Female

DRUGS (2)
  1. METHOTREXATE [Suspect]
     Active Substance: METHOTREXATE
     Indication: Acute lymphocytic leukaemia
     Route: 037
  2. METHOTREXATE [Suspect]
     Active Substance: METHOTREXATE
     Indication: Acute lymphocytic leukaemia
     Route: 048

REACTIONS (4)
  - Partial seizures with secondary generalisation [Recovered/Resolved]
  - Neurotoxicity [Recovered/Resolved]
  - Status epilepticus [Recovered/Resolved]
  - Focal dyscognitive seizures [Recovered/Resolved]
